FAERS Safety Report 10433488 (Version 1)
Quarter: 2014Q3

REPORT INFORMATION
  Report Type: Spontaneous
  Country: US (occurrence: US)
  Receive Date: 20140905
  Receipt Date: 20140905
  Transmission Date: 20150326
  Serious: No
  Sender: FDA-Public Use
  Company Number: US-PFIZER INC-2014246680

PATIENT
  Age: 48 Year
  Sex: Female
  Weight: 76.19 kg

DRUGS (1)
  1. LIPITOR [Suspect]
     Active Substance: ATORVASTATIN CALCIUM
     Indication: BLOOD CHOLESTEROL INCREASED
     Dosage: 10 MG, 1X/DAY
     Route: 048
     Dates: start: 2003, end: 2011

REACTIONS (7)
  - Osteoporosis [Unknown]
  - Hypertension [Unknown]
  - Drug ineffective [Unknown]
  - Arthritis [Unknown]
  - Asthma [Unknown]
  - Bronchitis [Unknown]
  - Depression [Unknown]

NARRATIVE: CASE EVENT DATE: 2004
